FAERS Safety Report 12671981 (Version 1)
Quarter: 2016Q3

REPORT INFORMATION
  Report Type: Spontaneous
  Country: US (occurrence: US)
  Receive Date: 20160822
  Receipt Date: 20160822
  Transmission Date: 20161109
  Serious: No
  Sender: FDA-Public Use
  Company Number: US-PFIZER INC-2016370447

PATIENT
  Sex: Female

DRUGS (2)
  1. MENEST [Suspect]
     Active Substance: ESTROGENS, ESTERIFIED
     Dosage: ONE TABLET FOR 5 DAYS A WEEK
  2. MENEST [Suspect]
     Active Substance: ESTROGENS, ESTERIFIED
     Dosage: ONE TABLET 3 TIMES A WEEK

REACTIONS (2)
  - Intentional product misuse [Unknown]
  - Hot flush [Unknown]
